FAERS Safety Report 4860176-9 (Version None)
Quarter: 2005Q4

REPORT INFORMATION
  Report Type: 
  Country: None (occurrence: None)
  Receive Date: 20051219
  Receipt Date: 20051114
  Transmission Date: 20060501
  Serious: Yes (Life-Threatening, Hospitalization)
  Sender: FDA-Public Use
  Company Number: JP-ROCHE-424698

PATIENT
  Age: 67 Year
  Sex: Female

DRUGS (4)
  1. HORIZON [Suspect]
     Route: 042
     Dates: start: 20040808, end: 20040808
  2. UNSPECIFIED DRUG [Concomitant]
     Indication: CHEMICAL POISONING
     Dosage: REPORTED AS PRALIDOXIME (PAM),
     Route: 042
     Dates: start: 20040808, end: 20040810
  3. ATROPINE SULFATE [Concomitant]
     Indication: MIOSIS
     Route: 042
     Dates: start: 20040808, end: 20040813
  4. PRIMPERAN INJ [Concomitant]
     Indication: NAUSEA
     Dosage: INDICATION REPORTED TO BE NAUSEA AND VOMITING.
     Route: 042
     Dates: start: 20040808

REACTIONS (4)
  - ALANINE AMINOTRANSFERASE INCREASED [None]
  - ASPARTATE AMINOTRANSFERASE INCREASED [None]
  - DEPRESSED LEVEL OF CONSCIOUSNESS [None]
  - RESPIRATORY FAILURE [None]
